FAERS Safety Report 10901565 (Version 1)
Quarter: 2015Q1

REPORT INFORMATION
  Report Type: Spontaneous
  Country: NZ (occurrence: NZ)
  Receive Date: 20150310
  Receipt Date: 20150310
  Transmission Date: 20150721
  Serious: Yes (Other)
  Sender: FDA-Public Use
  Company Number: NZ-CIPLA LTD.-2015NZ01774

PATIENT

DRUGS (2)
  1. LAMOTRIGINE. [Suspect]
     Active Substance: LAMOTRIGINE
     Indication: IMMUNODEFICIENCY
  2. CLOBAZAM [Suspect]
     Active Substance: CLOBAZAM
     Indication: IMMUNODEFICIENCY

REACTIONS (7)
  - Pneumonitis [Unknown]
  - Seizure [Recovered/Resolved]
  - Hypogammaglobulinaemia [None]
  - Respiratory tract infection [None]
  - Lung disorder [Unknown]
  - Appendicitis [Unknown]
  - Therapeutic response decreased [Unknown]
